FAERS Safety Report 12807226 (Version 2)
Quarter: 2017Q1

REPORT INFORMATION
  Report Type: Report from Study
  Country: GB (occurrence: GB)
  Receive Date: 20161004
  Receipt Date: 20170113
  Transmission Date: 20170428
  Serious: Yes (Hospitalization)
  Sender: FDA-Public Use
  Company Number: GB-JNJFOC-20160928273

PATIENT
  Age: 54 Year
  Sex: Female
  Weight: 89 kg

DRUGS (13)
  1. CETIRIZINE [Concomitant]
     Active Substance: CETIRIZINE HYDROCHLORIDE
     Route: 065
     Dates: start: 20080430
  2. LANSOPRAZOLE. [Concomitant]
     Active Substance: LANSOPRAZOLE
     Route: 065
     Dates: start: 20081205
  3. NABUMETONE. [Concomitant]
     Active Substance: NABUMETONE
     Route: 065
     Dates: start: 20090610, end: 20160607
  4. FLUOXETINE [Concomitant]
     Active Substance: FLUOXETINE HYDROCHLORIDE
     Route: 065
     Dates: start: 20140715, end: 20151202
  5. BENDROFLUMETHIAZIDE [Concomitant]
     Active Substance: BENDROFLUMETHIAZIDE
     Route: 065
     Dates: start: 20120327, end: 20160607
  6. RAMIPRIL. [Concomitant]
     Active Substance: RAMIPRIL
     Route: 065
     Dates: start: 20110203, end: 20160607
  7. RAMIPRIL. [Concomitant]
     Active Substance: RAMIPRIL
     Route: 065
     Dates: start: 20160824
  8. SIMVASTATIN. [Concomitant]
     Active Substance: SIMVASTATIN
     Route: 065
     Dates: start: 20130719
  9. COLECALCIFEROL [Concomitant]
     Active Substance: CHOLECALCIFEROL
     Route: 065
     Dates: start: 20160607
  10. STELARA [Suspect]
     Active Substance: USTEKINUMAB
     Indication: PSORIASIS
     Route: 058
     Dates: start: 20141224
  11. SERTRALINE [Concomitant]
     Active Substance: SERTRALINE HYDROCHLORIDE
     Route: 065
     Dates: start: 20140715, end: 20151202
  12. THYROXINE [Concomitant]
     Active Substance: LEVOTHYROXINE
     Route: 065
     Dates: start: 20061114
  13. ENOXAPARIN SODIUM. [Concomitant]
     Active Substance: ENOXAPARIN SODIUM
     Route: 065
     Dates: start: 20160607, end: 20160607

REACTIONS (2)
  - Acute kidney injury [Unknown]
  - Gastroenteritis [Recovered/Resolved]

NARRATIVE: CASE EVENT DATE: 20160606
